FAERS Safety Report 24026024 (Version 1)
Quarter: 2024Q2

REPORT INFORMATION
  Report Type: Spontaneous
  Country: JP (occurrence: JP)
  Receive Date: 20240628
  Receipt Date: 20240628
  Transmission Date: 20240716
  Serious: No
  Sender: FDA-Public Use
  Company Number: JP-CHUGAI-2024005459

PATIENT
  Sex: Female

DRUGS (1)
  1. ALECENSA [Suspect]
     Active Substance: ALECTINIB HYDROCHLORIDE
     Indication: Product used for unknown indication
     Dosage: UNK
     Route: 065
     Dates: start: 202304

REACTIONS (6)
  - Heavy menstrual bleeding [Unknown]
  - Mental impairment [Unknown]
  - Disturbance in attention [Unknown]
  - Taste disorder [Unknown]
  - Myalgia [Unknown]
  - Malaise [Unknown]
